FAERS Safety Report 5451716-X (Version None)
Quarter: 2007Q3

REPORT INFORMATION
  Report Type: 
  Country: None (occurrence: None)
  Receive Date: 20070913
  Receipt Date: 20061214
  Transmission Date: 20080115
  Serious: Yes (Other)
  Sender: FDA-Public Use
  Company Number: US-GENENTECH-233948

PATIENT

DRUGS (2)
  1. AVASTIN [Suspect]
     Indication: GLIOBLASTOMA MULTIFORME
  2. OXALIPLATIN [Suspect]
     Indication: GLIOBLASTOMA MULTIFORME

REACTIONS (1)
  - BLINDNESS [None]
